FAERS Safety Report 5636841-2 (Version None)
Quarter: 2008Q1

REPORT INFORMATION
  Report Type: 
  Country: None (occurrence: None)
  Receive Date: 20080225
  Receipt Date: 20080222
  Transmission Date: 20080703
  Serious: Yes (Hospitalization)
  Sender: FDA-Public Use
  Company Number: CN-ASTRAZENECA-2008AP01255

PATIENT
  Age: 55 Year
  Sex: Female

DRUGS (5)
  1. QUETIAPINE FUMARATE [Suspect]
     Indication: SCHIZOPHRENIA
     Route: 048
  2. QUETIAPINE FUMARATE [Suspect]
     Route: 048
  3. CHLORPERPHENAZINE [Concomitant]
     Indication: SCHIZOPHRENIA
     Route: 048
  4. CHLORPROMAZINE [Concomitant]
  5. CLOZAPINE [Concomitant]

REACTIONS (1)
  - SUPRAVENTRICULAR TACHYCARDIA [None]
